FAERS Safety Report 17853518 (Version 1)
Quarter: 2020Q2

REPORT INFORMATION
  Report Type: Spontaneous
  Country: US (occurrence: US)
  Receive Date: 20200603
  Receipt Date: 20200603
  Transmission Date: 20200714
  Serious: No
  Sender: FDA-Public Use
  Company Number: US-SUN PHARMACEUTICAL INDUSTRIES LTD-2019R1-219604

PATIENT
  Sex: Male

DRUGS (2)
  1. BROMSITE [Suspect]
     Active Substance: BROMFENAC SODIUM
     Indication: INFLAMMATION
     Dosage: UNK
     Route: 047
  2. PRED FORTE [Concomitant]
     Active Substance: PREDNISOLONE ACETATE
     Indication: MACULAR OEDEMA

REACTIONS (1)
  - Eye pain [Unknown]
